FAERS Safety Report 13662883 (Version 2)
Quarter: 2017Q3

REPORT INFORMATION
  Report Type: Spontaneous
  Country: JP (occurrence: JP)
  Receive Date: 20170619
  Receipt Date: 20170718
  Transmission Date: 20171127
  Serious: Yes (Other)
  Sender: FDA-Public Use
  Company Number: JP-ROCHE-1950808

PATIENT
  Age: 14 Year
  Sex: Female

DRUGS (1)
  1. CELLCEPT [Suspect]
     Active Substance: MYCOPHENOLATE MOFETIL\MYCOPHENOLATE MOFETIL HYDROCHLORIDE
     Indication: FOCAL SEGMENTAL GLOMERULOSCLEROSIS
     Dosage: DOSAGE IS UNCERTAIN.
     Route: 048

REACTIONS (6)
  - Body height below normal [Unknown]
  - Off label use [Unknown]
  - Lipids abnormal [Unknown]
  - Obesity [Unknown]
  - Proteinuria [Recovered/Resolved]
  - Diabetes mellitus [Unknown]
